FAERS Safety Report 12633876 (Version 1)
Quarter: 2016Q3

REPORT INFORMATION
  Report Type: Spontaneous
  Country: US (occurrence: None)
  Receive Date: 20160808
  Receipt Date: 20160808
  Transmission Date: 20161109
  Serious: Yes (Life-Threatening, Hospitalization)
  Sender: FDA-Public Use
  Company Number: None

PATIENT
  Age: 64 Year
  Sex: Male
  Weight: 110.4 kg

DRUGS (1)
  1. LISINOPRIL. [Suspect]
     Active Substance: LISINOPRIL
     Indication: HYPERTENSION
     Route: 048
     Dates: start: 20150123, end: 20160514

REACTIONS (6)
  - Stridor [None]
  - Oropharyngeal pain [None]
  - Dysphagia [None]
  - Petechiae [None]
  - Laryngitis [None]
  - Dysphonia [None]

NARRATIVE: CASE EVENT DATE: 20160515
